FAERS Safety Report 13073232 (Version 1)
Quarter: 2016Q4

REPORT INFORMATION
  Report Type: Spontaneous
  Country: US (occurrence: US)
  Receive Date: 20161229
  Receipt Date: 20161229
  Transmission Date: 20170207
  Serious: Yes (Other)
  Sender: FDA-Public Use
  Company Number: US-PFIZER INC-2016597090

PATIENT
  Age: 77 Year
  Sex: Female

DRUGS (1)
  1. CELEBREX [Suspect]
     Active Substance: CELECOXIB
     Dosage: UNK

REACTIONS (5)
  - Seizure [Unknown]
  - Lower limb fracture [Not Recovered/Not Resolved]
  - Impaired driving ability [Unknown]
  - Arthralgia [Not Recovered/Not Resolved]
  - Localised infection [Unknown]
